FAERS Safety Report 6923723-9 (Version None)
Quarter: 2010Q3

REPORT INFORMATION
  Report Type: 
  Country: None (occurrence: None)
  Receive Date: 20100813
  Receipt Date: 20100722
  Transmission Date: 20110219
  Serious: Yes (Hospitalization, Other)
  Sender: FDA-Public Use
  Company Number: US-BAYER-201027794NA

PATIENT
  Age: 38 Year
  Sex: Male

DRUGS (4)
  1. BETASERON [Suspect]
     Indication: PRODUCT USED FOR UNKNOWN INDICATION
     Route: 058
     Dates: start: 20080101, end: 20090401
  2. TYSABRI [Concomitant]
  3. EFFEXOR [Concomitant]
     Indication: ANXIETY
  4. XANAX [Concomitant]
     Indication: ANXIETY

REACTIONS (2)
  - PARAPLEGIA [None]
  - PULMONARY EMBOLISM [None]
